FAERS Safety Report 13042093 (Version 2)
Quarter: 2017Q1

REPORT INFORMATION
  Report Type: Spontaneous
  Country: US (occurrence: US)
  Receive Date: 20161219
  Receipt Date: 20170109
  Transmission Date: 20170428
  Serious: No
  Sender: FDA-Public Use
  Company Number: US-PFIZER INC-2016531344

PATIENT
  Age: 59 Year
  Sex: Male

DRUGS (15)
  1. VITAMIN B12 [Concomitant]
     Active Substance: CYANOCOBALAMIN
     Dosage: 1000 UG, 1X/DAY
     Route: 048
  2. LANTUS [Concomitant]
     Active Substance: INSULIN GLARGINE
     Dosage: 100 IU/ML, DAILY
     Route: 058
  3. METFORMIN [Concomitant]
     Active Substance: METFORMIN HYDROCHLORIDE
     Dosage: 500 MG, 2X/DAY
     Route: 048
  4. OLANZAPINE. [Concomitant]
     Active Substance: OLANZAPINE
     Dosage: 20 MG, 1X/DAY (AT BEDTIME)
     Route: 048
  5. VENLAFAXINE [Concomitant]
     Active Substance: VENLAFAXINE HYDROCHLORIDE
     Dosage: 75 MG, 1X/DAY
     Route: 048
  6. LYRICA [Suspect]
     Active Substance: PREGABALIN
     Indication: NEUROPATHY PERIPHERAL
     Dosage: 200 MG, 4X/DAY
     Route: 048
     Dates: start: 20100119
  7. BENZTROPINE [Concomitant]
     Active Substance: BENZTROPINE
     Dosage: 1 MG, DAILY
     Route: 048
  8. FENOFIBRATE. [Concomitant]
     Active Substance: FENOFIBRATE
     Dosage: 160 MG, DAILY
     Route: 048
  9. BD ALCOHOL [Concomitant]
     Dosage: UNK UNK, 2X/DAY
     Route: 061
  10. BENZTROPINE MESYLATE. [Concomitant]
     Active Substance: BENZTROPINE MESYLATE
     Dosage: 1 MG, DAILY
     Route: 048
  11. LISINOPRIL. [Concomitant]
     Active Substance: LISINOPRIL
     Dosage: 20 MG, DAILY
     Route: 048
  12. QUETIAPINE. [Concomitant]
     Active Substance: QUETIAPINE
     Dosage: 600 MG, DAILY (200 MG TABLET, ONE TABLET EVERY MORNING AND 2 TABLETS EVERY EVENING)
     Route: 048
  13. BD ALCOHOL [Concomitant]
     Dosage: UNK, 1X/DAY
     Route: 061
  14. ATENOLOL. [Concomitant]
     Active Substance: ATENOLOL
     Dosage: 50 MG, DAILY
     Route: 048
  15. PRAVASTATIN. [Concomitant]
     Active Substance: PRAVASTATIN
     Dosage: 10 MG, DAILY
     Route: 048

REACTIONS (3)
  - Prescribed overdose [Unknown]
  - Off label use [Unknown]
  - Pain [Unknown]
